FAERS Safety Report 20823454 (Version 1)
Quarter: 2022Q2

REPORT INFORMATION
  Report Type: Spontaneous
  Country: JP (occurrence: JP)
  Receive Date: 20220513
  Receipt Date: 20220513
  Transmission Date: 20220720
  Serious: Yes (Hospitalization)
  Sender: FDA-Public Use
  Company Number: JP-TAKEDA-2022TJP046388

PATIENT
  Age: 80 Year
  Sex: Male

DRUGS (1)
  1. ROZEREM [Suspect]
     Active Substance: RAMELTEON
     Indication: Product used for unknown indication
     Dosage: UNK
     Route: 065

REACTIONS (7)
  - Sleep apnoea syndrome [Unknown]
  - Pyrexia [Unknown]
  - Platelet count decreased [Unknown]
  - Decreased appetite [Unknown]
  - Hepatic function abnormal [Unknown]
  - Blood cholinesterase abnormal [Unknown]
  - Somnolence [Unknown]
